FAERS Safety Report 8620430-1 (Version None)
Quarter: 2012Q3

REPORT INFORMATION
  Report Type: 
  Country: None (occurrence: None)
  Receive Date: 20120820
  Receipt Date: 20120820
  Transmission Date: 20120928
  Serious: Yes (Other)
  Sender: FDA-Public Use
  Company Number: None

PATIENT
  Age: 61 Year
  Sex: Female
  Weight: 64.4108 kg

DRUGS (4)
  1. METOPRALOL [Concomitant]
  2. ROSUVASTATIN [Concomitant]
  3. EFFIENT [Suspect]
     Indication: PROPHYLAXIS
     Dosage: ONCE DAILY   PO
     Route: 048
     Dates: start: 20120801, end: 20120808
  4. ASPIRIN [Concomitant]

REACTIONS (4)
  - THROAT IRRITATION [None]
  - COUGH [None]
  - RASH MACULAR [None]
  - DYSPNOEA [None]
